FAERS Safety Report 9522390 (Version 1)
Quarter: 2013Q3

REPORT INFORMATION
  Report Type: Spontaneous
  Country: US (occurrence: None)
  Receive Date: 20130911
  Receipt Date: 20130911
  Transmission Date: 20140515
  Serious: No
  Sender: FDA-Public Use
  Company Number: AEUSA201200085

PATIENT
  Age: 52 Year
  Sex: Female
  Weight: 84.37 kg

DRUGS (2)
  1. GAMUNEX-C (10 PCT) [Suspect]
     Indication: IMMUNODEFICIENCY COMMON VARIABLE
     Route: 058
     Dates: start: 201208
  2. ESTROGEN [Concomitant]

REACTIONS (3)
  - Blood pressure increased [None]
  - Arthralgia [None]
  - Myalgia [None]
